FAERS Safety Report 4389565-6 (Version None)
Quarter: 2004Q2

REPORT INFORMATION
  Report Type: 
  Country: None (occurrence: None)
  Receive Date: 20040629
  Receipt Date: 20040323
  Transmission Date: 20050107
  Serious: Yes (Hospitalization)
  Sender: FDA-Public Use
  Company Number: US-JNJFOC-20040305574

PATIENT
  Age: 66 Year
  Sex: Female

DRUGS (7)
  1. DURAGESIC [Suspect]
     Indication: PAIN
     Dosage: SEE IMAGE
     Route: 062
     Dates: start: 20030106, end: 20030205
  2. DURAGESIC [Suspect]
     Indication: PAIN
     Dosage: SEE IMAGE
     Route: 062
     Dates: start: 20030205, end: 20030623
  3. DURAGESIC [Suspect]
     Indication: PAIN
     Dosage: SEE IMAGE
     Route: 062
     Dates: start: 20030623
  4. LORAZEPAM [Concomitant]
  5. ZOLOFT [Concomitant]
  6. AMITRIPTYLINE HCL [Concomitant]
  7. ACCOLATE [Concomitant]

REACTIONS (7)
  - ANOREXIA [None]
  - DIZZINESS [None]
  - HYPOAESTHESIA [None]
  - NAUSEA [None]
  - PAIN [None]
  - RASH [None]
  - TREMOR [None]
